FAERS Safety Report 10258589 (Version 2)
Quarter: 2014Q3

REPORT INFORMATION
  Report Type: Report from Study
  Country: CA (occurrence: CA)
  Receive Date: 20140625
  Receipt Date: 20140721
  Transmission Date: 20150326
  Serious: Yes (Hospitalization, Other)
  Sender: FDA-Public Use
  Company Number: CA-ABBVIE-14P-028-1250027-00

PATIENT
  Sex: Female

DRUGS (1)
  1. HUMIRA [Suspect]
     Active Substance: ADALIMUMAB
     Indication: CROHN^S DISEASE
     Dosage: UNKNOWN
     Route: 058
     Dates: start: 20140303, end: 20140526

REACTIONS (8)
  - Malaise [Unknown]
  - Gastrointestinal inflammation [Unknown]
  - Adhesion [Unknown]
  - Drug ineffective [Not Recovered/Not Resolved]
  - Surgery [Unknown]
  - Feeling abnormal [Unknown]
  - Crohn^s disease [Unknown]
  - Small intestinal obstruction [Unknown]
